FAERS Safety Report 13047684 (Version 1)
Quarter: 2016Q4

REPORT INFORMATION
  Report Type: Spontaneous
  Country: US (occurrence: US)
  Receive Date: 20161220
  Receipt Date: 20161220
  Transmission Date: 20170207
  Serious: Yes (Other)
  Sender: FDA-Public Use
  Company Number: US-ELI_LILLY_AND_COMPANY-US201612005349

PATIENT
  Sex: Male

DRUGS (5)
  1. HUMALOG MIX75/25 [Suspect]
     Active Substance: INSULIN LISPRO
     Indication: TYPE 2 DIABETES MELLITUS
     Dosage: UNK, UNKNOWN
     Route: 065
  2. NOVOLOG [Suspect]
     Active Substance: INSULIN ASPART
     Indication: TYPE 2 DIABETES MELLITUS
     Dosage: UNK, UNKNOWN
     Route: 065
  3. TOUJEO [Suspect]
     Active Substance: INSULIN GLARGINE
     Indication: TYPE 2 DIABETES MELLITUS
     Dosage: UNK, UNKNOWN
     Route: 065
  4. HUMALOG [Suspect]
     Active Substance: INSULIN LISPRO
     Dosage: 20 U, BID AND PRN DURING THE DAY
     Route: 065
     Dates: start: 201611
  5. HUMALOG [Suspect]
     Active Substance: INSULIN LISPRO
     Indication: TYPE 2 DIABETES MELLITUS
     Dosage: 20 U, BID AND PRN DURING THE DAY
     Route: 065
     Dates: start: 201611

REACTIONS (8)
  - Stress [Unknown]
  - Back injury [Unknown]
  - Pain [Unknown]
  - Intervertebral disc protrusion [Unknown]
  - Blood glucose increased [Unknown]
  - Weight increased [Unknown]
  - Post polio syndrome [Unknown]
  - Abasia [Unknown]

NARRATIVE: CASE EVENT DATE: 2015
